FAERS Safety Report 15703177 (Version 1)
Quarter: 2018Q4

REPORT INFORMATION
  Report Type: Spontaneous
  Country: US (occurrence: US)
  Receive Date: 20181127
  Receipt Date: 20181127
  Transmission Date: 20190205
  Serious: Yes (Other)
  Sender: FDA-Public Use
  Company Number: None

PATIENT
  Age: 40 Year
  Sex: Female
  Weight: 62.1 kg

DRUGS (5)
  1. DULOXETINE. [Concomitant]
     Active Substance: DULOXETINE
  2. INDOMETHACIN. [Concomitant]
     Active Substance: INDOMETHACIN
  3. ERENUMAB [Suspect]
     Active Substance: ERENUMAB
     Indication: MIGRAINE
     Route: 058
     Dates: start: 20180830, end: 20181030
  4. SUMATRIPTAN. [Concomitant]
     Active Substance: SUMATRIPTAN
  5. RIBOFLAVIN [Concomitant]
     Active Substance: RIBOFLAVIN

REACTIONS (10)
  - Constipation [None]
  - Alice in wonderland syndrome [None]
  - Visual snow syndrome [None]
  - Migraine with aura [None]
  - Disturbance in attention [None]
  - Trigeminal nerve disorder [None]
  - Depression [None]
  - Fatigue [None]
  - Head discomfort [None]
  - Migraine [None]

NARRATIVE: CASE EVENT DATE: 20181030
